FAERS Safety Report 6442744-6 (Version None)
Quarter: 2009Q4

REPORT INFORMATION
  Report Type: 
  Country: None (occurrence: None)
  Receive Date: 20091117
  Receipt Date: 20091103
  Transmission Date: 20100525
  Serious: Yes (Congenital Anomaly)
  Sender: FDA-Public Use
  Company Number: PHHY2009GB49073

PATIENT
  Sex: Male

DRUGS (2)
  1. TEGRETOL RETARD [Suspect]
     Dosage: MATERNAL DOSE: 400 MG
     Route: 064
  2. TEGRETOL RETARD [Suspect]
     Dosage: MATERNAL DOSE: 200 MG
     Route: 064

REACTIONS (2)
  - DRUG EXPOSURE DURING PREGNANCY [None]
  - FOETAL ANTICONVULSANT SYNDROME [None]
